FAERS Safety Report 20928476 (Version 7)
Quarter: 2022Q3

REPORT INFORMATION
  Report Type: Spontaneous
  Country: CA (occurrence: CA)
  Receive Date: 20220607
  Receipt Date: 20220929
  Transmission Date: 20221027
  Serious: Yes (Other)
  Sender: FDA-Public Use
  Company Number: CA-CELLTRION INC.-2021CA012594

PATIENT

DRUGS (24)
  1. INFLECTRA [Suspect]
     Active Substance: INFLIXIMAB-DYYB
     Indication: Crohn^s disease
     Dosage: 5 MG/KG, EVERY 8 WEEKS, Q 0, 2, 6 WEEK DOSE, THEN Q 8 WEEKS (HOSPITAL START)
     Route: 042
     Dates: start: 202107, end: 20220720
  2. INFLECTRA [Suspect]
     Active Substance: INFLIXIMAB-DYYB
     Dosage: 1 DF
     Route: 042
     Dates: start: 20210803
  3. INFLECTRA [Suspect]
     Active Substance: INFLIXIMAB-DYYB
     Dosage: 5 MG/KG Q 0, 2, 6 WEEK DOSE, THEN Q 8 WEEKSHOSPITAL START
     Route: 042
     Dates: start: 20210901
  4. INFLECTRA [Suspect]
     Active Substance: INFLIXIMAB-DYYB
     Dosage: 5 MG/KG Q 0, 2, 6 WEEK DOSE, THEN Q 8 WEEKSHOSPITAL START
     Route: 042
     Dates: start: 20211015
  5. INFLECTRA [Suspect]
     Active Substance: INFLIXIMAB-DYYB
     Dosage: 290MG, (SUPPOSED TO RECEIVE 270 MG.) Q 0, 2, 6 WEEK DOSE, THEN Q 8 WEEKS HOSPITAL START
     Route: 042
     Dates: start: 20211207
  6. INFLECTRA [Suspect]
     Active Substance: INFLIXIMAB-DYYB
     Dosage: 5 MG/KG Q 0, 2, 6 WEEK DOSE, THEN Q 8 WEEKS HOSPITAL START
     Route: 042
     Dates: start: 20220330
  7. INFLECTRA [Suspect]
     Active Substance: INFLIXIMAB-DYYB
     Dosage: 5 MG/KG Q 0, 2, 6 WEEK DOSE, THEN Q 8 WEEKS HOSPITAL START
     Route: 042
     Dates: start: 20220527
  8. INFLECTRA [Suspect]
     Active Substance: INFLIXIMAB-DYYB
     Dosage: 5 MG/KG Q 0, 2, 6 WEEK DOSE, THEN Q 8 WEEKS HOSPITAL START
     Route: 042
     Dates: start: 20220720
  9. INFLECTRA [Suspect]
     Active Substance: INFLIXIMAB-DYYB
     Dosage: 5 MG/KG, EVERY 6 WEEKS
     Route: 042
     Dates: start: 20220915
  10. ACETAMINOPHEN [Concomitant]
     Active Substance: ACETAMINOPHEN
     Indication: Premedication
     Dosage: 1000 MG
     Route: 048
     Dates: start: 20210803
  11. ATENOLOL [Concomitant]
     Active Substance: ATENOLOL
     Dosage: 1 DF DOSAGE NOT AVAILABLE
     Route: 065
  12. ATENOLOL [Concomitant]
     Active Substance: ATENOLOL
     Dosage: 1 DF, 12.5MG
     Route: 058
  13. CELEBREX [Concomitant]
     Active Substance: CELECOXIB
     Dosage: 10 MG
  14. METHOTREXATE [Concomitant]
     Active Substance: METHOTREXATE
     Dosage: 12.5 MG, 1 DF
     Route: 058
  15. MORPHINE [Concomitant]
     Active Substance: MORPHINE
     Dosage: 1 DF DOSAGE NOT AVAILABLE
     Route: 065
  16. PANTOPRAZOLE SODIUM [Concomitant]
     Active Substance: PANTOPRAZOLE SODIUM
     Dosage: 1 DF DOSAGE NOT AVAILABLE
     Route: 065
  17. POTASSIUM [Concomitant]
     Active Substance: POTASSIUM
     Dosage: 1 DF
  18. PREDNISONE [Concomitant]
     Active Substance: PREDNISONE
     Dosage: 1 DF
  19. TIMOLOL [Concomitant]
     Active Substance: TIMOLOL
     Dosage: 1 DF DOSAGE NOT AVAILABLE
     Route: 065
  20. VENTOLIN [Concomitant]
     Active Substance: ALBUTEROL SULFATE
     Dosage: 1 DF DOSAGE NOT AVAILABLE
     Route: 065
  21. FOLIC ACID [Concomitant]
     Active Substance: FOLIC ACID
     Dosage: UNK
  22. FOLIC ACID [Concomitant]
     Active Substance: FOLIC ACID
     Dosage: 1 DF
  23. CHOLECALCIFEROL [Concomitant]
     Active Substance: CHOLECALCIFEROL
     Dosage: 1 DF DOSAGE NOT AVAILABLE
     Route: 065
  24. XANAX [Concomitant]
     Active Substance: ALPRAZOLAM
     Dosage: 1 DF DOSAGE NOT AVAILABLE
     Route: 065

REACTIONS (11)
  - Condition aggravated [Recovering/Resolving]
  - Off label use [Unknown]
  - Inappropriate schedule of product administration [Unknown]
  - Paronychia [Not Recovered/Not Resolved]
  - Illness [Unknown]
  - Productive cough [Not Recovered/Not Resolved]
  - Nasal congestion [Not Recovered/Not Resolved]
  - Oropharyngeal pain [Not Recovered/Not Resolved]
  - Infection [Not Recovered/Not Resolved]
  - Cough [Recovering/Resolving]
  - Oropharyngeal pain [Recovering/Resolving]

NARRATIVE: CASE EVENT DATE: 20210901
